FAERS Safety Report 5148942-6 (Version None)
Quarter: 2006Q4

REPORT INFORMATION
  Report Type: 
  Country: None (occurrence: None)
  Receive Date: 20061113
  Receipt Date: 20061108
  Transmission Date: 20070319
  Serious: Yes (Hospitalization, Other)
  Sender: FDA-Public Use
  Company Number: AU-BRISTOL-MYERS SQUIBB COMPANY-13570114

PATIENT
  Age: 87 Year
  Sex: Female

DRUGS (5)
  1. PRAVACHOL [Suspect]
     Route: 048
     Dates: end: 20050812
  2. CLEXANE [Suspect]
     Route: 058
     Dates: start: 20050717, end: 20050812
  3. ERGOCALCIFEROL [Suspect]
     Route: 048
     Dates: start: 20050805, end: 20050812
  4. GLICLAZIDE [Suspect]
     Route: 048
     Dates: start: 20050803
  5. CEPHALEXIN [Suspect]
     Indication: UROGENITAL DISORDER
     Route: 048
     Dates: start: 20050729, end: 20050802

REACTIONS (2)
  - HEPATOTOXICITY [None]
  - JAUNDICE [None]
